FAERS Safety Report 9346360 (Version 1)
Quarter: 2013Q2

REPORT INFORMATION
  Report Type: Report from Study
  Country: FR (occurrence: FR)
  Receive Date: 20130613
  Receipt Date: 20130613
  Transmission Date: 20140414
  Serious: Yes (Hospitalization)
  Sender: FDA-Public Use
  Company Number: FR-ROCHE-1232286

PATIENT
  Age: 81 Year
  Sex: Female
  Weight: 70 kg

DRUGS (13)
  1. RITUXIMAB [Suspect]
     Indication: PRODUCT USED FOR UNKNOWN INDICATION
     Route: 042
     Dates: start: 20090407, end: 20090407
  2. RITUXIMAB [Suspect]
     Dosage: 2ND CYCLE
     Route: 042
     Dates: start: 20090429
  3. VINCRISTINE [Suspect]
     Indication: PRODUCT USED FOR UNKNOWN INDICATION
     Route: 042
     Dates: start: 20090408, end: 20090408
  4. VINCRISTINE [Suspect]
     Dosage: 2ND CYCLE
     Route: 042
     Dates: start: 20090429
  5. CYCLOPHOSPHAMIDE [Suspect]
     Indication: PRODUCT USED FOR UNKNOWN INDICATION
     Route: 042
     Dates: start: 20090408, end: 20090408
  6. CYCLOPHOSPHAMIDE [Suspect]
     Dosage: 2ND CYCLE
     Route: 042
     Dates: start: 20090429
  7. DOXORUBICIN HCL [Suspect]
     Indication: PRODUCT USED FOR UNKNOWN INDICATION
     Route: 042
     Dates: start: 20090408, end: 20090408
  8. DOXORUBICIN HCL [Suspect]
     Dosage: 2ND CYCLE
     Route: 042
     Dates: start: 20090429
  9. PREDNISOLONE [Suspect]
     Indication: PRODUCT USED FOR UNKNOWN INDICATION
     Route: 042
     Dates: start: 20090407, end: 20090408
  10. PREDNISOLONE [Suspect]
     Dosage: 2ND CYCLE
     Route: 042
     Dates: start: 20090429
  11. POTASSIUM CHLORIDE [Concomitant]
     Dosage: DAILY DOSE: 3 CPS
     Route: 048
  12. OMEPRAZOLE [Concomitant]
     Dosage: DAILY DOSE: 1 GL
     Route: 048
  13. CORTANCYL [Concomitant]
     Indication: POLYARTHRITIS
     Route: 048

REACTIONS (3)
  - Febrile bone marrow aplasia [Recovered/Resolved with Sequelae]
  - Malaise [Recovered/Resolved with Sequelae]
  - Syncope [Recovered/Resolved with Sequelae]
